FAERS Safety Report 5899024-7 (Version None)
Quarter: 2008Q3

REPORT INFORMATION
  Report Type: 
  Country: None (occurrence: None)
  Receive Date: 20080925
  Receipt Date: 20080922
  Transmission Date: 20090109
  Serious: Yes (Hospitalization)
  Sender: FDA-Public Use
  Company Number: US-AVENTIS-200718344US

PATIENT
  Sex: Female
  Weight: 87.26 kg

DRUGS (11)
  1. KETEK [Suspect]
     Route: 048
     Dates: start: 20061001, end: 20061001
  2. CRESTOR [Suspect]
  3. ALLOPURINOL [Concomitant]
     Route: 048
  4. INDOMETHACIN [Concomitant]
     Route: 048
  5. RITALIN-SR [Concomitant]
     Route: 048
  6. CALCIUM GLUCONATE [Concomitant]
     Route: 048
  7. ASPIRIN [Concomitant]
     Route: 048
  8. LEXAPRO [Concomitant]
     Route: 048
  9. ATIVAN [Concomitant]
     Dosage: DOSE: 1MG TID
  10. LISINOPRIL [Concomitant]
     Dosage: DOSE: 10-12.5 MG
     Route: 048
  11. COUGH AND COLD PREPARATIONS [Concomitant]
     Dosage: DOSE: 30-30-1200MG 1 BID

REACTIONS (22)
  - ABDOMINAL DISTENSION [None]
  - ABDOMINAL PAIN [None]
  - ALANINE AMINOTRANSFERASE INCREASED [None]
  - ASPARTATE AMINOTRANSFERASE INCREASED [None]
  - BLOOD ALKALINE PHOSPHATASE INCREASED [None]
  - CHEST PAIN [None]
  - DEHYDRATION [None]
  - DIARRHOEA [None]
  - DYSPNOEA [None]
  - HAEMATOCHEZIA [None]
  - HAEMATOCRIT INCREASED [None]
  - LIVER FUNCTION TEST ABNORMAL [None]
  - OEDEMA PERIPHERAL [None]
  - PYREXIA [None]
  - RASH [None]
  - SERUM SICKNESS [None]
  - SKIN REACTION [None]
  - SWELLING FACE [None]
  - SWOLLEN TONGUE [None]
  - SYNCOPE [None]
  - URTICARIA [None]
  - WHITE BLOOD CELL COUNT INCREASED [None]
